FAERS Safety Report 15290701 (Version 2)
Quarter: 2019Q2

REPORT INFORMATION
  Report Type: Spontaneous
  Country: US (occurrence: US)
  Receive Date: 20180817
  Receipt Date: 20190507
  Transmission Date: 20190711
  Serious: Yes (Death, Hospitalization, Disabling, Other)
  Sender: FDA-Public Use
  Company Number: US-009507513-1808USA007424

PATIENT
  Sex: Female
  Weight: 84.3 kg

DRUGS (6)
  1. VICTOZA [Suspect]
     Active Substance: LIRAGLUTIDE
     Dosage: UNK MILLIGRAM
     Route: 065
     Dates: start: 20141208, end: 20150702
  2. VICTOZA [Suspect]
     Active Substance: LIRAGLUTIDE
     Indication: TYPE 2 DIABETES MELLITUS
     Dosage: 0.6 MILLIGRAM, QD
     Route: 065
     Dates: start: 20111020, end: 20111027
  3. JANUVIA [Suspect]
     Active Substance: SITAGLIPTIN PHOSPHATE
     Indication: TYPE 2 DIABETES MELLITUS
     Dosage: 100 MILLIGRAM, QD
     Route: 048
     Dates: start: 20141023, end: 20150801
  4. BYDUREON [Suspect]
     Active Substance: EXENATIDE
     Indication: TYPE 2 DIABETES MELLITUS
     Dosage: 2 MILLIGRAM, QW
     Route: 065
     Dates: start: 20140627, end: 20140930
  5. VICTOZA [Suspect]
     Active Substance: LIRAGLUTIDE
     Dosage: 1.2 MILLIGRAM
     Route: 065
     Dates: start: 20111028, end: 20120125
  6. VICTOZA [Suspect]
     Active Substance: LIRAGLUTIDE
     Dosage: 1.8 MILLIGRAM
     Route: 065
     Dates: start: 20120427, end: 20131108

REACTIONS (18)
  - Depression [Unknown]
  - Deafness neurosensory [Unknown]
  - Osteopenia [Unknown]
  - Death [Fatal]
  - Pancreatic carcinoma [Unknown]
  - Deep vein thrombosis [Unknown]
  - Bursitis [Unknown]
  - Sleep apnoea syndrome [Unknown]
  - Anaemia [Unknown]
  - Subarachnoid haemorrhage [Unknown]
  - Metastases to liver [Unknown]
  - Hypercalcaemia [Unknown]
  - Hyperlipidaemia [Unknown]
  - Temporomandibular joint syndrome [Unknown]
  - Pain in extremity [Unknown]
  - Postmenopausal haemorrhage [Unknown]
  - Carotid artery stenosis [Unknown]
  - Essential hypertension [Unknown]

NARRATIVE: CASE EVENT DATE: 20150729
